FAERS Safety Report 7552356-9 (Version None)
Quarter: 2011Q2

REPORT INFORMATION
  Report Type: 
  Country: None (occurrence: None)
  Receive Date: 20110616
  Receipt Date: 20080908
  Transmission Date: 20111010
  Serious: Yes (Death, Hospitalization)
  Sender: FDA-Public Use
  Company Number: PHHY2008NZ20609

PATIENT
  Sex: Female

DRUGS (1)
  1. CLOZAPINE [Suspect]
     Indication: SCHIZOPHRENIA
     Dates: start: 20050420

REACTIONS (3)
  - LOWER RESPIRATORY TRACT INFECTION [None]
  - MYOCARDIAL INFARCTION [None]
  - PULMONARY OEDEMA [None]
